FAERS Safety Report 23393695 (Version 1)
Quarter: 2024Q1

REPORT INFORMATION
  Report Type: Spontaneous
  Country: US (occurrence: US)
  Receive Date: 20240111
  Receipt Date: 20240111
  Transmission Date: 20240410
  Serious: No
  Sender: FDA-Public Use
  Company Number: US-REGENERON PHARMACEUTICALS, INC.-2023-126847

PATIENT
  Sex: Male

DRUGS (5)
  1. EYLEA [Suspect]
     Active Substance: AFLIBERCEPT
     Indication: Neovascular age-related macular degeneration
     Dosage: 2 MG, Q8W, LEFT EYE, FORMULATION: GERRESHEIMER PFS
     Dates: start: 20220818
  2. EYLEA [Suspect]
     Active Substance: AFLIBERCEPT
     Indication: Choroidal neovascularisation
     Dosage: 2 MG, Q8W, RIGHT EYE, FORMULATION: GERRESHEIMER PFS
     Dates: start: 20220818, end: 2023
  3. EYLEA [Suspect]
     Active Substance: AFLIBERCEPT
     Dosage: 2 MG, Q9 WEEKS, RIGHT EYE; FORMULATION: GERRESHEIMER PFS
     Dates: start: 20230707, end: 2023
  4. EYLEA [Suspect]
     Active Substance: AFLIBERCEPT
     Dosage: 2 MG, Q8W, RIGHT EYE, FORMULATION: GERRESHEIMER PFS
     Dates: start: 202309
  5. MINERALS\VITAMINS [Concomitant]
     Active Substance: MINERALS\VITAMINS
     Indication: Product used for unknown indication
     Dosage: 1 {DF}, BID

REACTIONS (1)
  - Treatment failure [Unknown]
